FAERS Safety Report 20654746 (Version 1)
Quarter: 2022Q1

REPORT INFORMATION
  Report Type: Spontaneous
  Country: US (occurrence: US)
  Receive Date: 20220330
  Receipt Date: 20220330
  Transmission Date: 20220424
  Serious: No
  Sender: FDA-Public Use
  Company Number: US-BAYER-2022A042282

PATIENT
  Sex: Male

DRUGS (2)
  1. ALIQOPA [Suspect]
     Active Substance: COPANLISIB
     Dosage: 60 MG VIAL
  2. ALIQOPA [Suspect]
     Active Substance: COPANLISIB
     Dosage: 45 MG

REACTIONS (1)
  - Blood glucose increased [Not Recovered/Not Resolved]
